FAERS Safety Report 6681461-4 (Version None)
Quarter: 2010Q2

REPORT INFORMATION
  Report Type: 
  Country: None (occurrence: None)
  Receive Date: 20100414
  Receipt Date: 20100403
  Transmission Date: 20101027
  Serious: Yes (Hospitalization)
  Sender: FDA-Public Use
  Company Number: MX-JNJFOC-20090401135

PATIENT
  Age: 76 Year
  Sex: Male

DRUGS (6)
  1. TAVANIC [Suspect]
     Indication: DRUG USE FOR UNKNOWN INDICATION
     Route: 048
  2. SUPREFACT [Suspect]
     Indication: DRUG USE FOR UNKNOWN INDICATION
     Route: 058
  3. SECOTEX [Concomitant]
     Route: 065
  4. CASODEX [Concomitant]
     Route: 065
  5. EPIVAL [Concomitant]
     Route: 065
  6. EBIXIA [Concomitant]
     Route: 065

REACTIONS (8)
  - ABDOMINAL DISTENSION [None]
  - AGITATION [None]
  - APPLICATION SITE HAEMATOMA [None]
  - ATELECTASIS [None]
  - IMPLANT SITE HAEMORRHAGE [None]
  - INSOMNIA [None]
  - PLEURAL EFFUSION [None]
  - RENAL FAILURE ACUTE [None]
